FAERS Safety Report 19082531 (Version 6)
Quarter: 2023Q1

REPORT INFORMATION
  Report Type: Spontaneous
  Country: CH (occurrence: CH)
  Receive Date: 20210401
  Receipt Date: 20230213
  Transmission Date: 20230417
  Serious: Yes (Hospitalization, Other)
  Sender: FDA-Public Use
  Company Number: CH-VERTEX PHARMACEUTICALS-2021-005143

PATIENT
  Age: 36 Year
  Sex: Male
  Weight: 74 kg

DRUGS (13)
  1. TRIKAFTA [Suspect]
     Active Substance: ELEXACAFTOR\IVACAFTOR\TEZACAFTOR
     Indication: Cystic fibrosis
     Dosage: TWO TABLETS AM AND ONE TABLET PM
     Route: 048
     Dates: start: 20201224, end: 20210204
  2. TRIKAFTA [Suspect]
     Active Substance: ELEXACAFTOR\IVACAFTOR\TEZACAFTOR
     Dosage: REDUCED DOSE; 1 TAB AM ALTERNATING WITH 2 TABS AM (NO EVENING DOSE)
     Route: 048
     Dates: start: 20210312
  3. SERETIDE [Concomitant]
     Active Substance: FLUTICASONE PROPIONATE\SALMETEROL XINAFOATE
     Dosage: UNK, BID
  4. VENTOLIN [Concomitant]
     Active Substance: ALBUTEROL SULFATE
  5. CREON [Concomitant]
     Active Substance: PANCRELIPASE AMYLASE\PANCRELIPASE LIPASE\PANCRELIPASE PROTEASE
     Dosage: UNK, QID
  6. KONAKION [Concomitant]
     Active Substance: PHYTONADIONE
     Dosage: UNK, QD
  7. .ALPHA.-TOCOPHEROL ACETATE [Concomitant]
     Active Substance: .ALPHA.-TOCOPHEROL ACETATE
     Dosage: EVERY 48 HOURS
  8. SUPRADYN ACTIVE [Concomitant]
     Dosage: UNK, BID
  9. VITAMIN C [Concomitant]
     Active Substance: ASCORBIC ACID
     Dosage: UNK, TID
  10. NEXIUM [Concomitant]
     Active Substance: ESOMEPRAZOLE MAGNESIUM
     Dosage: UNK, QD
  11. CYKLOKAPRON [Concomitant]
     Active Substance: TRANEXAMIC ACID
  12. NOVORAPID [Concomitant]
     Active Substance: INSULIN ASPART
     Dosage: POSTPRANDIAL DOSING REGIMEN
  13. LEVEMIR [Concomitant]
     Active Substance: INSULIN DETEMIR
     Indication: Infective pulmonary exacerbation of cystic fibrosis

REACTIONS (11)
  - Hepatocellular injury [Recovered/Resolved]
  - Abdominal pain [Recovered/Resolved]
  - Infective pulmonary exacerbation of cystic fibrosis [Recovered/Resolved]
  - Constipation [Recovered/Resolved]
  - Pneumonia [Recovering/Resolving]
  - Alveolitis [Recovering/Resolving]
  - Therapy interrupted [Recovered/Resolved]
  - General physical health deterioration [Unknown]
  - Weight decreased [Unknown]
  - Haemoglobin decreased [Recovered/Resolved]
  - C-reactive protein increased [Unknown]

NARRATIVE: CASE EVENT DATE: 20210101
